FAERS Safety Report 15401553 (Version 1)
Quarter: 2018Q3

REPORT INFORMATION
  Report Type: Spontaneous
  Country: US (occurrence: US)
  Receive Date: 20180914
  Receipt Date: 20180914
  Transmission Date: 20181010
  Serious: Yes (Other)
  Sender: FDA-Public Use
  Company Number: None

PATIENT
  Age: 27 Year
  Sex: Male
  Weight: 80.55 kg

DRUGS (2)
  1. OCREVUS [Concomitant]
     Active Substance: OCRELIZUMAB
     Dates: start: 20180131, end: 20180815
  2. OCREVUS [Suspect]
     Active Substance: OCRELIZUMAB
     Indication: MULTIPLE SCLEROSIS
     Dosage: INTRAVENOUS DRIP EVERY 6 MONTHS?
     Route: 041
     Dates: start: 20180131, end: 20180815

REACTIONS (8)
  - Headache [None]
  - Aphasia [None]
  - Fatigue [None]
  - Sinus tachycardia [None]
  - Seizure [None]
  - Deja vu [None]
  - Amnesia [None]
  - Fear [None]

NARRATIVE: CASE EVENT DATE: 20180910
